FAERS Safety Report 8876589 (Version 1)
Quarter: 2012Q4

REPORT INFORMATION
  Report Type: 
  Country: US (occurrence: US)
  Receive Date: 20121030
  Receipt Date: 20121030
  Transmission Date: 20130627
  Serious: Yes (Other)
  Sender: FDA-Public Use
  Company Number: US-MERCK-1210USA010284

PATIENT
  Age: 70 Year
  Sex: Female

DRUGS (5)
  1. CLARITIN [Suspect]
     Indication: LACRIMATION INCREASED
  2. CLARITIN [Suspect]
     Indication: EYE PRURITUS
  3. CLARITIN [Suspect]
     Indication: THROAT IRRITATION
  4. CLARITIN [Suspect]
     Indication: NASAL CONGESTION
  5. HYDROCHLOROTHIAZIDE AND LISINOPRIL [Suspect]
     Indication: HYPERTENSION

REACTIONS (2)
  - Cerebrovascular accident [Recovered/Resolved]
  - Drug ineffective [Unknown]
